FAERS Safety Report 14031059 (Version 2)
Quarter: 2017Q4

REPORT INFORMATION
  Report Type: Spontaneous
  Country: CN (occurrence: CN)
  Receive Date: 20171002
  Receipt Date: 20171020
  Transmission Date: 20180321
  Serious: Yes (Other)
  Sender: FDA-Public Use
  Company Number: CN-NOVOPROD-547615

PATIENT
  Age: 38 Year
  Sex: Female

DRUGS (1)
  1. LEVEMIR [Suspect]
     Active Substance: INSULIN DETEMIR
     Indication: BLOOD GLUCOSE INCREASED
     Dosage: 14 U, QD (BEFORE SLEEP)
     Route: 065

REACTIONS (3)
  - Blood glucose abnormal [Recovered/Resolved]
  - Exposure during pregnancy [Recovered/Resolved]
  - Oligohydramnios [Unknown]

NARRATIVE: CASE EVENT DATE: 20170804
